FAERS Safety Report 19748221 (Version 2)
Quarter: 2022Q1

REPORT INFORMATION
  Report Type: Spontaneous
  Country: DE (occurrence: DE)
  Receive Date: 20210826
  Receipt Date: 20220205
  Transmission Date: 20220423
  Serious: Yes (Hospitalization)
  Sender: FDA-Public Use
  Company Number: DE-ASTRAZENECA-2021A443624

PATIENT
  Age: 63 Year
  Sex: Female

DRUGS (37)
  1. PACLITAXEL [Suspect]
     Active Substance: PACLITAXEL
     Indication: Ovarian cancer
     Dosage: 301 MG, TIW
     Route: 042
     Dates: start: 20210309, end: 20210309
  2. PACLITAXEL [Suspect]
     Active Substance: PACLITAXEL
     Dosage: 303 MG, TIW
     Route: 042
     Dates: start: 20210331, end: 20210331
  3. PACLITAXEL [Suspect]
     Active Substance: PACLITAXEL
     Dosage: 303 MG, TIW
     Route: 042
     Dates: start: 20210423, end: 20210423
  4. PACLITAXEL [Suspect]
     Active Substance: PACLITAXEL
     Dosage: 303 MG, TIW
     Route: 042
     Dates: start: 20210512, end: 20210512
  5. PACLITAXEL [Suspect]
     Active Substance: PACLITAXEL
     Dosage: 303 MG, TIW
     Route: 042
     Dates: start: 20210617, end: 20210617
  6. PACLITAXEL [Suspect]
     Active Substance: PACLITAXEL
     Dosage: 306 MG, TIW
     Route: 042
     Dates: start: 20210708, end: 20210708
  7. CARBOPLATIN [Suspect]
     Active Substance: CARBOPLATIN
     Indication: Ovarian cancer
     Dosage: 490 MG, TIW
     Route: 042
     Dates: start: 20210309, end: 20210309
  8. CARBOPLATIN [Suspect]
     Active Substance: CARBOPLATIN
     Dosage: 506 MG, TIW
     Route: 042
     Dates: start: 20210331, end: 20210331
  9. CARBOPLATIN [Suspect]
     Active Substance: CARBOPLATIN
     Dosage: 551 MG, TIW
     Route: 042
     Dates: start: 20210423, end: 20210423
  10. CARBOPLATIN [Suspect]
     Active Substance: CARBOPLATIN
     Dosage: 551 MG, TIW
     Route: 042
     Dates: start: 20210512, end: 20210512
  11. CARBOPLATIN [Suspect]
     Active Substance: CARBOPLATIN
     Dosage: 517 MG, TIW
     Route: 042
     Dates: start: 20210617, end: 20210617
  12. CARBOPLATIN [Suspect]
     Active Substance: CARBOPLATIN
     Dosage: 474 MG, TIW
     Route: 042
     Dates: start: 20210708, end: 20210708
  13. DURVALUMAB [Suspect]
     Active Substance: DURVALUMAB
     Indication: Ovarian cancer
     Dosage: 23 ML, TIW
     Route: 042
     Dates: start: 20210330, end: 20210330
  14. DURVALUMAB [Suspect]
     Active Substance: DURVALUMAB
     Dosage: 22 ML, TIW
     Route: 042
     Dates: start: 20210422, end: 20210422
  15. DURVALUMAB [Suspect]
     Active Substance: DURVALUMAB
     Dosage: 23 ML, TIW
     Route: 042
     Dates: start: 20210511, end: 20210511
  16. DURVALUMAB [Suspect]
     Active Substance: DURVALUMAB
     Dosage: 23 ML, TIW
     Route: 042
     Dates: start: 20210616, end: 20210616
  17. DURVALUMAB [Suspect]
     Active Substance: DURVALUMAB
     Dosage: 23 ML, TIW
     Route: 042
     Dates: start: 20210707, end: 20210707
  18. DURVALUMAB [Suspect]
     Active Substance: DURVALUMAB
     Dosage: 23 ML, TIW
     Route: 042
     Dates: start: 20210728, end: 20210728
  19. DURVALUMAB [Suspect]
     Active Substance: DURVALUMAB
     Route: 042
     Dates: start: 20210818, end: 20210818
  20. OLAPARIB [Suspect]
     Active Substance: OLAPARIB
     Indication: Ovarian cancer
     Dosage: 300 MG, Q12H
     Route: 048
     Dates: start: 20210728, end: 20210731
  21. GRANISETRON [Concomitant]
     Active Substance: GRANISETRON
     Indication: Chemotherapy side effect prophylaxis
     Dosage: 1 MG,QD
     Route: 042
     Dates: start: 20210309, end: 20210708
  22. MOVICOL [Concomitant]
     Active Substance: POLYETHYLENE GLYCOL 3350\POTASSIUM CHLORIDE\SODIUM BICARBONATE\SODIUM CHLORIDE
     Indication: Constipation
     Dosage: UNK
     Route: 048
     Dates: start: 20210511
  23. IBUPROFEN [Concomitant]
     Active Substance: IBUPROFEN
     Indication: Headache
     Dosage: 684 MG,QD
     Route: 048
     Dates: start: 20210422
  24. DIMETHINDENE MALEATE [Concomitant]
     Active Substance: DIMETHINDENE MALEATE
     Indication: Chemotherapy side effect prophylaxis
     Dosage: 4 MG,QD
     Route: 042
     Dates: start: 20210309, end: 20210708
  25. EFEROX [Concomitant]
     Active Substance: LEVOTHYROXINE SODIUM
     Indication: Surgery
     Dosage: 88 UG,QD
     Route: 048
     Dates: start: 19940101
  26. APREPITANT [Concomitant]
     Active Substance: APREPITANT
     Indication: Chemotherapy side effect prophylaxis
     Dosage: 125 MG,QD
     Route: 048
     Dates: start: 20210309, end: 20210708
  27. BEVACIZUMAB [Concomitant]
     Active Substance: BEVACIZUMAB
     Indication: Ovarian cancer
     Dosage: 1110 MG, TIW
     Route: 042
     Dates: start: 20210728, end: 20210728
  28. BEVACIZUMAB [Concomitant]
     Active Substance: BEVACIZUMAB
     Dosage: 1080 MG, TIW
     Route: 042
     Dates: start: 20210422, end: 20210422
  29. BEVACIZUMAB [Concomitant]
     Active Substance: BEVACIZUMAB
     Dosage: 1080 MG, TIW
     Route: 042
     Dates: start: 20210330, end: 20210330
  30. BEVACIZUMAB [Concomitant]
     Active Substance: BEVACIZUMAB
     Dosage: 1080 MG, TIW
     Route: 042
     Dates: start: 20210707, end: 20210707
  31. BEVACIZUMAB [Concomitant]
     Active Substance: BEVACIZUMAB
     Dosage: 1080 MG, TIW
     Route: 042
     Dates: start: 20210616, end: 20210616
  32. BEVACIZUMAB [Concomitant]
     Active Substance: BEVACIZUMAB
     Dosage: 1080 MG, TIW
     Route: 042
     Dates: start: 20210512, end: 20210512
  33. BEVACIZUMAB [Concomitant]
     Active Substance: BEVACIZUMAB
     Dosage: 1110 MG, TIW
     Route: 042
     Dates: start: 20210818, end: 20210818
  34. FAMOTIDINE [Concomitant]
     Active Substance: FAMOTIDINE
     Indication: Chemotherapy side effect prophylaxis
     Dosage: 20 MG,QD
     Route: 048
     Dates: start: 20210309, end: 20210708
  35. DEXAMETHASONE [Concomitant]
     Active Substance: DEXAMETHASONE
     Indication: Chemotherapy side effect prophylaxis
     Dosage: 20 MG,QD
     Route: 042
     Dates: start: 20210309, end: 20210708
  36. DEXAMETHASONE [Concomitant]
     Active Substance: DEXAMETHASONE
     Indication: Infusion related reaction
  37. PANTOPRAZOLE [Concomitant]
     Active Substance: PANTOPRAZOLE
     Indication: Abdominal pain upper
     Route: 048
     Dates: start: 20210517, end: 20210520

REACTIONS (1)
  - Arthralgia [Recovered/Resolved]

NARRATIVE: CASE EVENT DATE: 20210517
